FAERS Safety Report 18186358 (Version 1)
Quarter: 2020Q3

REPORT INFORMATION
  Report Type: Spontaneous
  Country: US (occurrence: US)
  Receive Date: 20200823
  Receipt Date: 20200823
  Transmission Date: 20201103
  Serious: Yes (Disabling)
  Sender: FDA-Public Use
  Company Number: None

PATIENT
  Age: 38 Year
  Sex: Female
  Weight: 87.75 kg

DRUGS (2)
  1. CIMZIA [Suspect]
     Active Substance: CERTOLIZUMAB PEGOL
     Indication: ANKYLOSING SPONDYLITIS
     Dosage: ?          QUANTITY:2 INJECTION(S);OTHER FREQUENCY:TWICE A MONTH;?
     Route: 058
     Dates: start: 20200621, end: 20200621
  2. CELEBREX [Concomitant]
     Active Substance: CELECOXIB

REACTIONS (6)
  - Pyrexia [None]
  - Palpitations [None]
  - Chest pain [None]
  - Lethargy [None]
  - Urticaria [None]
  - Dyspnoea [None]

NARRATIVE: CASE EVENT DATE: 20200621
